FAERS Safety Report 4400797-0 (Version None)
Quarter: 2004Q3

REPORT INFORMATION
  Report Type: 
  Country: None (occurrence: None)
  Receive Date: 20040907
  Receipt Date: 20030611
  Transmission Date: 20050211
  Serious: No
  Sender: FDA-Public Use
  Company Number: US-BRISTOL-MYERS SQUIBB COMPANY-12298584

PATIENT
  Age: 34 Year
  Sex: Male
  Weight: 77 kg

DRUGS (11)
  1. COUMADIN [Suspect]
     Indication: PULMONARY EMBOLISM
     Dosage: DOSE VALUE 5 MG ALTERNATING WITH 7.5 MG
     Route: 048
     Dates: start: 20030527
  2. DURAGESIC [Concomitant]
  3. NEURONTIN [Concomitant]
  4. VALTREX [Concomitant]
  5. LEXAPRO [Concomitant]
  6. HYDROCODONE [Concomitant]
  7. CYCLOBENZAPRINE HCL [Concomitant]
  8. MS CONTIN [Concomitant]
  9. MULTI-VITAMIN [Concomitant]
  10. VITAMIN B-12 [Concomitant]
  11. VITAMIN E [Concomitant]

REACTIONS (3)
  - ANXIETY [None]
  - FATIGUE [None]
  - INITIAL INSOMNIA [None]
